FAERS Safety Report 26133251 (Version 2)
Quarter: 2025Q4

REPORT INFORMATION
  Report Type: Report from Study
  Country: US (occurrence: None)
  Receive Date: 20251209
  Receipt Date: 20251229
  Transmission Date: 20260118
  Serious: Yes (Hospitalization, Other)
  Sender: UCB
  Company Number: US-UCBSA-2025077103

PATIENT
  Age: 21 Year
  Weight: 39 kg

DRUGS (2)
  1. FENFLURAMINE [Suspect]
     Active Substance: FENFLURAMINE
     Indication: Lennox-Gastaut syndrome
     Dosage: 14 MILLIGRAM PER DAY
  2. FENFLURAMINE [Suspect]
     Active Substance: FENFLURAMINE
     Dosage: 5.9 MILLIGRAM, 2X/DAY (BID)
     Route: 061

REACTIONS (4)
  - Mitral valve incompetence [Unknown]
  - Vomiting [Not Recovered/Not Resolved]
  - Renal stone removal [Not Recovered/Not Resolved]
  - Weight decreased [Not Recovered/Not Resolved]
